FAERS Safety Report 18099179 (Version 5)
Quarter: 2020Q4

REPORT INFORMATION
  Report Type: Spontaneous
  Country: US (occurrence: US)
  Receive Date: 20200731
  Receipt Date: 20201214
  Transmission Date: 20210113
  Serious: Yes (Other)
  Sender: FDA-Public Use
  Company Number: US-SA-2020SA198573

PATIENT

DRUGS (1)
  1. APIDRA [Suspect]
     Active Substance: INSULIN GLULISINE
     Indication: TYPE 1 DIABETES MELLITUS
     Dosage: 18-24 IU, ONCE DAILY
     Route: 065

REACTIONS (3)
  - Poor quality product administered [Unknown]
  - Device physical property issue [Recovering/Resolving]
  - Diabetes mellitus inadequate control [Recovering/Resolving]
